FAERS Safety Report 18974071 (Version 2)
Quarter: 2021Q1

REPORT INFORMATION
  Report Type: Spontaneous
  Country: US (occurrence: US)
  Receive Date: 20210305
  Receipt Date: 20210318
  Transmission Date: 20210420
  Serious: Yes (Other)
  Sender: FDA-Public Use
  Company Number: NVSC2021US039509

PATIENT
  Sex: Male

DRUGS (1)
  1. COSENTYX [Suspect]
     Active Substance: SECUKINUMAB
     Indication: PRODUCT USED FOR UNKNOWN INDICATION
     Dosage: UNK
     Route: 065

REACTIONS (7)
  - Skin ulcer [Unknown]
  - Osteomyelitis [Unknown]
  - Sinusitis [Unknown]
  - Infection [Unknown]
  - Gait inability [Unknown]
  - Wound [Unknown]
  - Impaired healing [Unknown]
